FAERS Safety Report 8934895 (Version 1)
Quarter: 2012Q4

REPORT INFORMATION
  Report Type: 
  Country: US (occurrence: US)
  Receive Date: 20121129
  Receipt Date: 20121129
  Transmission Date: 20130627
  Serious: No
  Sender: FDA-Public Use
  Company Number: US-B.I. PHARMACEUTICALS,INC./RIDGEFIELD-2012-BI-01053BP

PATIENT
  Sex: Female

DRUGS (4)
  1. TRADJENTA [Suspect]
     Dosage: 5 mg
     Dates: end: 20121108
  2. MEDICATION NOT FURTHER SPECIFIED [Concomitant]
     Indication: BLOOD PRESSURE ABNORMAL
  3. MEDICATION NOT FURTHER SPECIFIED [Concomitant]
     Indication: BLOOD CHOLESTEROL ABNORMAL
  4. MEDICATION NOT FURTHER SPECIFIED [Concomitant]
     Indication: DIABETES MELLITUS

REACTIONS (1)
  - Alopecia [Unknown]
